FAERS Safety Report 5741967-9 (Version None)
Quarter: 2008Q2

REPORT INFORMATION
  Report Type: 
  Country: None (occurrence: None)
  Receive Date: 20080515
  Receipt Date: 20080501
  Transmission Date: 20081010
  Serious: Yes (Hospitalization)
  Sender: FDA-Public Use
  Company Number: 234176J08USA

PATIENT
  Age: 48 Year
  Sex: Male
  Weight: 68.0396 kg

DRUGS (3)
  1. REBIF [Suspect]
     Indication: MULTIPLE SCLEROSIS
     Dates: start: 20061026, end: 20080201
  2. BLOOD PRESSURE MEDICATION (OTHER ANTIHYPERTENSIVES) [Concomitant]
  3. BACLOFEN [Concomitant]

REACTIONS (6)
  - CONDITION AGGRAVATED [None]
  - DIALYSIS [None]
  - MUSCLE SPASMS [None]
  - NEPHROSCLEROSIS [None]
  - PERICARDIAL EFFUSION [None]
  - RENAL TRANSPLANT [None]
